FAERS Safety Report 8472793-8 (Version None)
Quarter: 2012Q2

REPORT INFORMATION
  Report Type: 
  Country: None (occurrence: None)
  Receive Date: 20120627
  Receipt Date: 20120626
  Transmission Date: 20120825
  Serious: No
  Sender: FDA-Public Use
  Company Number: US-BAYER-2012-063374

PATIENT
  Age: 26 Year
  Sex: Female

DRUGS (3)
  1. TRIVORA-21 [Concomitant]
  2. BETASERON [Suspect]
     Dosage: 1 ML, QOD
     Route: 058
  3. ZOLOFT [Concomitant]
     Dosage: 100 MG, UNK

REACTIONS (2)
  - URTICARIA [None]
  - RASH PAPULAR [None]
